FAERS Safety Report 10918985 (Version 2)
Quarter: 2015Q2

REPORT INFORMATION
  Report Type: Spontaneous
  Country: US (occurrence: US)
  Receive Date: 20150316
  Receipt Date: 20150611
  Transmission Date: 20150821
  Serious: No
  Sender: FDA-Public Use
  Company Number: US-ASTELLAS-2015US003906

PATIENT
  Sex: Male

DRUGS (1)
  1. XTANDI [Suspect]
     Active Substance: ENZALUTAMIDE
     Indication: NEOPLASM MALIGNANT
     Dosage: 160 MG, ONCE DAILY(4 CAPSULES)
     Route: 048
     Dates: start: 20150105

REACTIONS (13)
  - Poor quality sleep [Unknown]
  - Gait disturbance [Unknown]
  - Strabismus [Unknown]
  - Arthralgia [Unknown]
  - Flatulence [Unknown]
  - Constipation [Unknown]
  - Bone pain [Unknown]
  - Hyperhidrosis [Unknown]
  - Paranasal sinus discomfort [Unknown]
  - Pain [Unknown]
  - Gynaecomastia [Unknown]
  - Fatigue [Unknown]
  - Myalgia [Unknown]
